FAERS Safety Report 19046700 (Version 1)
Quarter: 2021Q1

REPORT INFORMATION
  Report Type: Spontaneous
  Country: US (occurrence: US)
  Receive Date: 20210323
  Receipt Date: 20210323
  Transmission Date: 20210420
  Serious: Yes (Death, Other)
  Sender: FDA-Public Use
  Company Number: US-HIKMA PHARMACEUTICALS USA INC.-US-H14001-21-01391

PATIENT
  Age: 44 Year
  Sex: Male
  Weight: 150 kg

DRUGS (2)
  1. HEPARIN [Suspect]
     Active Substance: HEPARIN SODIUM
     Indication: PRODUCT USED FOR UNKNOWN INDICATION
     Dosage: 5,000 UNITS EVERY 8 HOURS
     Route: 058
  2. HEPARIN [Suspect]
     Active Substance: HEPARIN SODIUM
     Route: 042

REACTIONS (5)
  - Acute respiratory distress syndrome [Fatal]
  - Intra-abdominal haemorrhage [Unknown]
  - Infection [Unknown]
  - Septic shock [Fatal]
  - Pneumonia pseudomonal [Fatal]
